FAERS Safety Report 9804006 (Version 1)
Quarter: 2014Q1

REPORT INFORMATION
  Report Type: Spontaneous
  Country: US (occurrence: US)
  Receive Date: 20140108
  Receipt Date: 20140108
  Transmission Date: 20141002
  Serious: Yes (Other)
  Sender: FDA-Public Use
  Company Number: US-PFIZER INC-2014004246

PATIENT
  Sex: Female

DRUGS (4)
  1. NEURONTIN [Suspect]
     Indication: NERVE INJURY
     Dosage: UNK
  2. NEURONTIN [Suspect]
     Indication: PAIN
  3. GABAPENTIN [Suspect]
     Indication: NERVE INJURY
     Dosage: UNK
  4. GABAPENTIN [Suspect]
     Indication: PAIN

REACTIONS (10)
  - Convulsion [Unknown]
  - Muscle spasms [Unknown]
  - Mental impairment [Unknown]
  - Diplopia [Unknown]
  - Dizziness [Unknown]
  - Speech disorder [Unknown]
  - Coordination abnormal [Unknown]
  - Amnesia [Unknown]
  - Infection [Unknown]
  - Eye movement disorder [Unknown]
